FAERS Safety Report 17713606 (Version 1)
Quarter: 2020Q2

REPORT INFORMATION
  Report Type: Spontaneous
  Country: US (occurrence: US)
  Receive Date: 20200427
  Receipt Date: 20200427
  Transmission Date: 20200714
  Serious: Yes (Hospitalization)
  Sender: FDA-Public Use
  Company Number: US-PFIZER INC-2020166676

PATIENT
  Age: 62 Year
  Sex: Female
  Weight: 125 kg

DRUGS (2)
  1. XELJANZ [Suspect]
     Active Substance: TOFACITINIB CITRATE
     Indication: RHEUMATOID ARTHRITIS
     Dosage: UNK
     Dates: end: 20200213
  2. METHOTREXATE. [Concomitant]
     Active Substance: METHOTREXATE
     Indication: RHEUMATOID ARTHRITIS
     Dosage: 8 MG, WEEKLY

REACTIONS (4)
  - Head discomfort [Unknown]
  - Intervertebral disc disorder [Unknown]
  - Feeling abnormal [Unknown]
  - Gait disturbance [Unknown]

NARRATIVE: CASE EVENT DATE: 20200227
